FAERS Safety Report 11164996 (Version 2)
Quarter: 2015Q2

REPORT INFORMATION
  Report Type: Report from Study
  Country: CZ (occurrence: CZ)
  Receive Date: 20150604
  Receipt Date: 20150625
  Transmission Date: 20150821
  Serious: Yes (Other)
  Sender: FDA-Public Use
  Company Number: CZ-TEVA-567714ISR

PATIENT
  Age: 21 Year
  Sex: Female

DRUGS (14)
  1. HALOPERIDOL. [Concomitant]
     Active Substance: HALOPERIDOL
     Dosage: 140 MILLIGRAM DAILY;
  2. HALOPERIDOL. [Concomitant]
     Active Substance: HALOPERIDOL
     Dosage: 18.5 MILLIGRAM DAILY;
  3. LEVOMEPROMAZINE [Concomitant]
     Active Substance: LEVOMEPROMAZINE
     Dosage: 175 MILLIGRAM DAILY;
     Route: 048
  4. RISPERIDONE. [Suspect]
     Active Substance: RISPERIDONE
     Dosage: 8 MILLIGRAM DAILY;
     Route: 048
  5. CLOZAPINE. [Concomitant]
     Active Substance: CLOZAPINE
     Dosage: 400 MILLIGRAM DAILY;
     Route: 048
  6. HALOPERIDOL. [Concomitant]
     Active Substance: HALOPERIDOL
  7. CLOZAPINE. [Concomitant]
     Active Substance: CLOZAPINE
     Dosage: 500 MILLIGRAM DAILY;
     Route: 048
  8. ARIPIPRAZOL [Concomitant]
     Active Substance: ARIPIPRAZOLE
     Dosage: 15 MILLIGRAM DAILY;
     Route: 048
  9. FLUFENAZIL DEPOT [Concomitant]
     Dosage: 25 MILLIGRAM DAILY;
  10. OLANZAPINE. [Suspect]
     Active Substance: OLANZAPINE
     Dosage: 20 MILLIGRAM DAILY;
     Route: 048
  11. HALOPERIDOL. [Concomitant]
     Active Substance: HALOPERIDOL
     Dosage: 13.5 MILLIGRAM DAILY;
  12. LEVOMEPROMAZINE [Concomitant]
     Active Substance: LEVOMEPROMAZINE
     Dosage: 125 MILLIGRAM DAILY;
     Route: 048
  13. LEVOMEPROMAZINE [Concomitant]
     Active Substance: LEVOMEPROMAZINE
     Dosage: 250 MILLIGRAM DAILY;
     Route: 048
  14. HALOPERIDOL. [Concomitant]
     Active Substance: HALOPERIDOL
     Dosage: 70 MILLIGRAM DAILY;

REACTIONS (6)
  - Weight increased [Unknown]
  - Hyperprolactinaemia [Unknown]
  - Drug abuse [Unknown]
  - Epilepsy [Unknown]
  - Neutropenia [Unknown]
  - Alcohol abuse [Unknown]
